FAERS Safety Report 10440844 (Version 1)
Quarter: 2014Q3

REPORT INFORMATION
  Report Type: Spontaneous
  Country: US (occurrence: US)
  Receive Date: 20140909
  Receipt Date: 20140909
  Transmission Date: 20150326
  Serious: No
  Sender: FDA-Public Use
  Company Number: US-BAYER-2014-128037

PATIENT
  Age: 44 Year
  Sex: Female

DRUGS (3)
  1. ALEVE [Suspect]
     Active Substance: NAPROXEN SODIUM
     Indication: MUSCLE SPASMS
     Dosage: UNK
  2. HUMIRA [Suspect]
     Active Substance: ADALIMUMAB
     Indication: PSORIATIC ARTHROPATHY
     Dosage: 1 IN 2 WK
     Dates: start: 20140702
  3. TYLENOL [Suspect]
     Active Substance: ACETAMINOPHEN
     Indication: MUSCLE SPASMS
     Dosage: UNK
     Dates: start: 201407

REACTIONS (2)
  - Drug ineffective [None]
  - Intentional product misuse [None]

NARRATIVE: CASE EVENT DATE: 201407
